FAERS Safety Report 13761183 (Version 2)
Quarter: 2019Q4

REPORT INFORMATION
  Report Type: Spontaneous
  Country: US (occurrence: US)
  Receive Date: 20170717
  Receipt Date: 20191021
  Transmission Date: 20200122
  Serious: Yes (Other)
  Sender: FDA-Public Use
  Company Number: US-TEVA-788181USA

PATIENT
  Sex: Female

DRUGS (11)
  1. LIDOCAINE. [Concomitant]
     Active Substance: LIDOCAINE
     Dosage: GTT: GIVEN INTRAOPERATIVELY
     Route: 065
  2. KETAMINE [Concomitant]
     Active Substance: KETAMINE
     Dosage: STRENGTH:200; GIVEN INTRAOPERATIVELY
     Route: 065
  3. METHADONE [Concomitant]
     Active Substance: METHADONE HYDROCHLORIDE
     Dosage: GIVEN INTRAOPERATIVELY
     Route: 065
  4. FENTANYL TRANSDERMAL SYSTEM [Concomitant]
     Active Substance: FENTANYL
     Dosage: STRENGTH: 200MCG/HOUR
     Route: 062
  5. HYDROMORPHONE [Concomitant]
     Active Substance: HYDROMORPHONE
     Dosage: 3-4 TIMES PER DAYS
     Route: 065
  6. ACTIQ [Suspect]
     Active Substance: FENTANYL CITRATE
     Indication: FIBROMYALGIA
     Dosage: 400 MICROGRAM DAILY;
     Route: 048
     Dates: start: 20030529
  7. SUFENTA [Concomitant]
     Active Substance: SUFENTANIL CITRATE
     Dosage: GIVEN INTRAOPERATIVELY
     Route: 065
  8. DILAUDID [Concomitant]
     Active Substance: HYDROMORPHONE HYDROCHLORIDE
     Dosage: GIVEN INTRAOPERATIVELY
     Route: 065
  9. KETAMINE [Concomitant]
     Active Substance: KETAMINE
     Dosage: INCREASED GTT TO 10MG/HOUR
     Route: 065
  10. ACTIQ [Suspect]
     Active Substance: FENTANYL CITRATE
     Dosage: 9600 MICROGRAM DAILY; DOSE INCREASED
     Route: 048
     Dates: end: 20160826
  11. LIDOCAINE. [Concomitant]
     Active Substance: LIDOCAINE
     Dosage: 1MG/KG/HOUR AND MONITOR LEVELS Q8H, GOAL;{5-LEVEL OVERNIGHT 1.7

REACTIONS (3)
  - Product use in unapproved indication [Unknown]
  - Dental caries [Not Recovered/Not Resolved]
  - Near death experience [Not Recovered/Not Resolved]
